FAERS Safety Report 25201753 (Version 1)
Quarter: 2025Q2

REPORT INFORMATION
  Report Type: Spontaneous
  Country: US (occurrence: US)
  Receive Date: 20250416
  Receipt Date: 20250416
  Transmission Date: 20250717
  Serious: Yes (Other)
  Sender: AMGEN
  Company Number: US-AMGEN-USASP2025070638

PATIENT
  Age: 4 Year
  Sex: Female

DRUGS (12)
  1. BLINATUMOMAB [Suspect]
     Active Substance: BLINATUMOMAB
     Indication: B-cell type acute leukaemia
     Dosage: 5 MICROGRAM/SQ. METER, QD (FOR 7 DAYS) (FIRST COURSE)
     Route: 065
  2. BLINATUMOMAB [Suspect]
     Active Substance: BLINATUMOMAB
     Dosage: 15 MICROGRAM/SQ. METER, QD (ON DAYS 8-28) (FIRST COURSE)
     Route: 065
  3. BLINATUMOMAB [Suspect]
     Active Substance: BLINATUMOMAB
     Route: 065
  4. BLINATUMOMAB [Suspect]
     Active Substance: BLINATUMOMAB
     Route: 065
  5. METHOTREXATE [Suspect]
     Active Substance: METHOTREXATE
     Indication: B-cell type acute leukaemia
     Route: 040
  6. INOTUZUMAB OZOGAMICIN [Concomitant]
     Active Substance: INOTUZUMAB OZOGAMICIN
     Indication: B-cell type acute leukaemia
     Dosage: 0.6 MILLIGRAM/SQ. METER, QD (ON DAY 1) (COURSE 1)
     Route: 040
  7. INOTUZUMAB OZOGAMICIN [Concomitant]
     Active Substance: INOTUZUMAB OZOGAMICIN
     Dosage: 0.3 MILLIGRAM/SQ. METER, QD (ON DAY 8) (COURSE 1)
     Route: 040
  8. INOTUZUMAB OZOGAMICIN [Concomitant]
     Active Substance: INOTUZUMAB OZOGAMICIN
     Dosage: 0.3 MILLIGRAM/SQ. METER, QD (ON DAYS 1 AND 8) (COURSE 3 AND ONWARD)
     Route: 040
  9. CYCLOPHOSPHAMIDE [Concomitant]
     Active Substance: CYCLOPHOSPHAMIDE
     Indication: B-cell type acute leukaemia
     Dosage: 150 MILLIGRAM/SQ. METER, Q12H (ON DAYS 1 AND 3) (IV OVER 2 HOUR)
     Route: 040
  10. VINCRISTINE [Concomitant]
     Active Substance: VINCRISTINE
     Indication: B-cell type acute leukaemia
     Dosage: 1.5 MILLIGRAM/SQ. METER, QD (ON DAYS 4 AND 11) (MAXIMUM DOSE: 2 MG)
     Route: 040
  11. DEXAMETHASONE [Concomitant]
     Active Substance: DEXAMETHASONE
     Indication: B-cell type acute leukaemia
     Dosage: 12 MILLIGRAM/SQ. METER, QD (DIVIDED AS TWICE DAILY) (EVERY 12H ON DAYS 1-4 AND 11-14)
     Route: 048
  12. CYTARABINE [Concomitant]
     Active Substance: CYTARABINE
     Indication: B-cell type acute leukaemia
     Dosage: 500 MILLIGRAM/SQ. METER, Q12H (ON DAYS 2 AND 3) (IV OVER 2 H)
     Route: 040

REACTIONS (3)
  - Cytokine release syndrome [Recovered/Resolved]
  - Seizure [Unknown]
  - Tachycardia [Recovered/Resolved]
